FAERS Safety Report 8280167-8 (Version None)
Quarter: 2012Q2

REPORT INFORMATION
  Report Type: 
  Country: None (occurrence: None)
  Receive Date: 20120412
  Receipt Date: 20120406
  Transmission Date: 20120825
  Serious: Yes (Hospitalization, Disabling, Other)
  Sender: FDA-Public Use
  Company Number: US-MERCK-1108USA02810

PATIENT
  Age: 74 Year
  Sex: Female
  Weight: 64 kg

DRUGS (7)
  1. ALENDRONATE SODIUM [Suspect]
     Indication: OSTEOPOROSIS
     Route: 048
     Dates: start: 20080213
  2. FOSAMAX [Suspect]
     Indication: OSTEOPOROSIS PROPHYLAXIS
     Route: 048
     Dates: start: 19970101, end: 20080213
  3. VITAMINS (UNSPECIFIED) [Concomitant]
     Route: 065
     Dates: start: 19970101
  4. ALENDRONATE SODIUM [Suspect]
     Indication: OSTEOPOROSIS PROPHYLAXIS
     Route: 048
     Dates: start: 20080213
  5. CALCIUM (UNSPECIFIED) [Concomitant]
     Route: 065
     Dates: start: 19970101
  6. VITAMIN E [Concomitant]
     Route: 048
     Dates: start: 19990101
  7. FOSAMAX [Suspect]
     Indication: OSTEOPOROSIS
     Route: 048
     Dates: start: 19970101, end: 20080213

REACTIONS (27)
  - FEMUR FRACTURE [None]
  - LOW TURNOVER OSTEOPATHY [None]
  - ANXIETY [None]
  - ROAD TRAFFIC ACCIDENT [None]
  - VITAMIN D DEFICIENCY [None]
  - MUSCULOSKELETAL STIFFNESS [None]
  - OSTEOPENIA [None]
  - GASTROINTESTINAL DISORDER [None]
  - AORTIC ANEURYSM [None]
  - ADVERSE EVENT [None]
  - ATAXIA [None]
  - OROPHARYNGEAL PAIN [None]
  - LOWER LIMB FRACTURE [None]
  - HYPERCHOLESTEROLAEMIA [None]
  - BREAST DISORDER [None]
  - FALL [None]
  - CAROTID BRUIT [None]
  - DENTAL CARIES [None]
  - HYPERTENSION [None]
  - WRIST FRACTURE [None]
  - CHEST PAIN [None]
  - DEPRESSION [None]
  - DIVERTICULUM [None]
  - UTERINE PROLAPSE [None]
  - HIP FRACTURE [None]
  - DYSPNOEA [None]
  - IMPAIRED HEALING [None]
